FAERS Safety Report 9167139 (Version 1)
Quarter: 2013Q1

REPORT INFORMATION
  Report Type: Spontaneous
  Country: US (occurrence: None)
  Receive Date: 20130305
  Receipt Date: 20130305
  Transmission Date: 20140127
  Serious: Yes (Death)
  Sender: FDA-Public Use
  Company Number: TPA2013A01751

PATIENT
  Age: 70 Year
  Sex: Female

DRUGS (1)
  1. EDARBI [Suspect]
     Indication: HYPERTENSION
     Dates: start: 20130101, end: 2013

REACTIONS (2)
  - Renal failure [None]
  - Cardiovascular disorder [None]
